FAERS Safety Report 15478504 (Version 2)
Quarter: 2019Q1

REPORT INFORMATION
  Report Type: Spontaneous
  Country: JP (occurrence: JP)
  Receive Date: 20181009
  Receipt Date: 20190313
  Transmission Date: 20190417
  Serious: Yes (Life-Threatening, Other)
  Sender: FDA-Public Use
  Company Number: JP-PFIZER INC-2018398114

PATIENT
  Age: 82 Year
  Sex: Male
  Weight: 60 kg

DRUGS (7)
  1. ACTOS [Suspect]
     Active Substance: PIOGLITAZONE HYDROCHLORIDE
     Indication: DIABETES MELLITUS
     Dosage: 15 MG, 1X/DAY
     Route: 048
     Dates: start: 201612
  2. EQUMET LD [Concomitant]
     Dosage: UNK
  3. LYRICA [Suspect]
     Active Substance: PREGABALIN
     Indication: HYPOAESTHESIA
     Dosage: 75 MG, 2X/DAY
     Route: 048
     Dates: start: 20170112, end: 20180907
  4. LYRICA [Suspect]
     Active Substance: PREGABALIN
     Dosage: 25 MG, 1X/DAY
     Route: 048
     Dates: start: 20181009
  5. GOREI-SAN [Suspect]
     Active Substance: HERBALS
  6. AIMIX HD [Concomitant]
     Dosage: UNK
  7. LANSOPRAZOLE. [Concomitant]
     Active Substance: LANSOPRAZOLE
     Dosage: UNK

REACTIONS (3)
  - Varicose vein [Not Recovered/Not Resolved]
  - Oedema peripheral [Recovering/Resolving]
  - Thrombosis [Not Recovered/Not Resolved]

NARRATIVE: CASE EVENT DATE: 201801
